FAERS Safety Report 7372543-2 (Version None)
Quarter: 2011Q1

REPORT INFORMATION
  Report Type: 
  Country: None (occurrence: None)
  Receive Date: 20110324
  Receipt Date: 20110315
  Transmission Date: 20110831
  Serious: Yes (Other)
  Sender: FDA-Public Use
  Company Number: US-BAXTER-2011BH006696

PATIENT

DRUGS (1)
  1. FACTOR VIII, UNSPECIFIED [Suspect]
     Indication: HAEMOPHILIA
     Route: 065

REACTIONS (9)
  - PAIN [None]
  - DEPRESSED MOOD [None]
  - FACTOR VIII INHIBITION [None]
  - HAEMORRHAGE [None]
  - INSOMNIA [None]
  - CONDITION AGGRAVATED [None]
  - ARTHRITIS [None]
  - MOVEMENT DISORDER [None]
  - ARTHRALGIA [None]
